FAERS Safety Report 17250343 (Version 1)
Quarter: 2020Q1

REPORT INFORMATION
  Report Type: Spontaneous
  Country: CN (occurrence: CN)
  Receive Date: 20200109
  Receipt Date: 20200109
  Transmission Date: 20200409
  Serious: Yes (Other)
  Sender: FDA-Public Use
  Company Number: CN-009507513-2001CHN000317

PATIENT
  Age: 63 Year
  Sex: Male
  Weight: 65 kg

DRUGS (4)
  1. TIENAM [Suspect]
     Active Substance: CILASTATIN SODIUM\IMIPENEM
     Indication: POST PROCEDURAL INFECTION
     Dosage: 1 GRAM, Q6H
     Route: 041
     Dates: start: 20191222, end: 20191224
  2. SODIUM CHLORIDE. [Concomitant]
     Active Substance: SODIUM CHLORIDE
     Dosage: 100 MILLILITER, Q6H
     Route: 041
     Dates: start: 20191222
  3. TIENAM [Suspect]
     Active Substance: CILASTATIN SODIUM\IMIPENEM
     Indication: FEBRILE INFECTION
  4. TIENAM [Suspect]
     Active Substance: CILASTATIN SODIUM\IMIPENEM
     Indication: BACTERIAL INFECTION

REACTIONS (2)
  - Delirium [Unknown]
  - Irregular sleep wake rhythm disorder [Unknown]

NARRATIVE: CASE EVENT DATE: 20191224
